FAERS Safety Report 15453309 (Version 1)
Quarter: 2018Q4

REPORT INFORMATION
  Report Type: Spontaneous
  Country: US (occurrence: US)
  Receive Date: 20181001
  Receipt Date: 20181001
  Transmission Date: 20190204
  Serious: Yes (Other)
  Sender: FDA-Public Use
  Company Number: US-PFIZER INC-2018394528

PATIENT
  Age: 60 Year
  Sex: Female

DRUGS (1)
  1. LYRICA [Suspect]
     Active Substance: PREGABALIN
     Dosage: UNK

REACTIONS (7)
  - Blindness unilateral [Unknown]
  - Carpal tunnel syndrome [Unknown]
  - Pain [Unknown]
  - Gait disturbance [Unknown]
  - Cataract [Unknown]
  - Lymphadenopathy [Unknown]
  - Pain in extremity [Unknown]
